FAERS Safety Report 7632754-5 (Version None)
Quarter: 2011Q3

REPORT INFORMATION
  Report Type: 
  Country: None (occurrence: None)
  Receive Date: 20110725
  Receipt Date: 20110408
  Transmission Date: 20111222
  Serious: No
  Sender: FDA-Public Use
  Company Number: US-BRISTOL-MYERS SQUIBB COMPANY-15461387

PATIENT
  Age: 65 Year
  Sex: Female
  Weight: 60 kg

DRUGS (9)
  1. COUMADIN [Suspect]
     Indication: ATRIAL FIBRILLATION
     Dosage: DURATION:2+1/2 MONTHS
     Route: 048
     Dates: start: 20101101
  2. KLOR-CON [Concomitant]
  3. MULTAQ [Concomitant]
  4. METFORMIN HCL [Concomitant]
  5. PRILOSEC [Concomitant]
  6. SIMVASTATIN [Concomitant]
  7. TEMAZEPAM [Concomitant]
  8. TOPROL-XL [Concomitant]
  9. BENTYL [Concomitant]

REACTIONS (5)
  - INTERNATIONAL NORMALISED RATIO FLUCTUATION [None]
  - ABDOMINAL DISTENSION [None]
  - FALL [None]
  - DIARRHOEA [None]
  - WEIGHT INCREASED [None]
